FAERS Safety Report 10901258 (Version 1)
Quarter: 2015Q1

REPORT INFORMATION
  Report Type: Other
  Country: GB (occurrence: GB)
  Receive Date: 20150310
  Receipt Date: 20150310
  Transmission Date: 20150721
  Serious: Yes (Other)
  Sender: FDA-Public Use
  Company Number: GB-MYLANLABS-2015M1006062

PATIENT

DRUGS (4)
  1. AMLODIPINE [Suspect]
     Active Substance: AMLODIPINE BESYLATE
     Dosage: UNK
     Dates: start: 20150126
  2. PROGYNOVA [Concomitant]
     Active Substance: ESTRADIOL VALERATE
     Dosage: UNK
     Dates: start: 20140916
  3. RAMIPRIL. [Concomitant]
     Active Substance: RAMIPRIL
     Dosage: UNK
     Dates: start: 20141118, end: 20150128
  4. PROPRANOLOL [Concomitant]
     Active Substance: PROPRANOLOL\PROPRANOLOL HYDROCHLORIDE
     Dosage: UNK
     Dates: start: 20141118, end: 20150128

REACTIONS (2)
  - Gingival bleeding [Unknown]
  - Gingival hyperplasia [Unknown]

NARRATIVE: CASE EVENT DATE: 20150213
